FAERS Safety Report 17764973 (Version 1)
Quarter: 2020Q2

REPORT INFORMATION
  Report Type: Spontaneous
  Country: SE (occurrence: SE)
  Receive Date: 20200511
  Receipt Date: 20200511
  Transmission Date: 20200714
  Serious: Yes (Life-Threatening)
  Sender: FDA-Public Use
  Company Number: SE-ROCHE-2596244

PATIENT
  Age: 79 Year
  Sex: Male

DRUGS (9)
  1. LASIX [Concomitant]
     Active Substance: FUROSEMIDE
     Route: 065
  2. ESBRIET [Suspect]
     Active Substance: PIRFENIDONE
     Indication: PRODUCT USED FOR UNKNOWN INDICATION
     Route: 048
     Dates: start: 20191128, end: 20200110
  3. BISOPROLOL [Concomitant]
     Active Substance: BISOPROLOL
     Route: 065
  4. ELIQUIS [Concomitant]
     Active Substance: APIXABAN
  5. KALEORID [Concomitant]
     Active Substance: POTASSIUM CHLORIDE
     Route: 065
  6. MORPHINE [Concomitant]
     Active Substance: MORPHINE
     Dosage: ^0.5-1 LB (RARELY)^
     Route: 065
  7. ALLOPURINOL. [Concomitant]
     Active Substance: ALLOPURINOL
     Route: 065
  8. EMGESAN [Concomitant]
     Active Substance: MAGNESIUM HYDROXIDE
     Route: 065
  9. MIRAPEXIN [Concomitant]
     Active Substance: PRAMIPEXOLE
     Route: 065

REACTIONS (2)
  - Pancreatitis [Recovered/Resolved with Sequelae]
  - Cholangitis [Recovered/Resolved with Sequelae]

NARRATIVE: CASE EVENT DATE: 20200103
